FAERS Safety Report 4325404-7 (Version None)
Quarter: 2004Q1

REPORT INFORMATION
  Report Type: 
  Country: None (occurrence: None)
  Receive Date: 20040324
  Receipt Date: 20040312
  Transmission Date: 20041129
  Serious: Yes (Death)
  Sender: FDA-Public Use
  Company Number: 200410780GDS

PATIENT
  Age: 87 Year
  Sex: Female

DRUGS (7)
  1. ASPIRIN [Suspect]
     Indication: PROPHYLAXIS
     Dosage: 100 MG, QD, ORAL
     Route: 048
     Dates: end: 20040301
  2. CLOPIDOGREL [Suspect]
     Indication: PROPHYLAXIS
     Dosage: 75 MG, QD, ORAL
     Route: 048
     Dates: end: 20040301
  3. DIOSMIN [Concomitant]
  4. LEVOTHYROXINE SODIUM [Concomitant]
  5. PRAVASTATIN [Concomitant]
  6. ESOMEPRAZOLE [Concomitant]
  7. CARVEDILOL [Concomitant]

REACTIONS (1)
  - HAEMORRHAGE INTRACRANIAL [None]
